FAERS Safety Report 4379413-2 (Version None)
Quarter: 2004Q2

REPORT INFORMATION
  Report Type: 
  Country: None (occurrence: None)
  Receive Date: 20040614
  Receipt Date: 20040526
  Transmission Date: 20050107
  Serious: Yes (Hospitalization, Other)
  Sender: FDA-Public Use
  Company Number: DE-JNJFOC-20040601645

PATIENT
  Age: 63 Year
  Sex: Male

DRUGS (6)
  1. REOPRO (ABCIXIMAB) INJECTION [Suspect]
     Indication: ACUTE MYOCARDIAL INFARCTION
     Dosage: SEE IMAGE
     Dates: start: 20030104
  2. REOPRO (ABCIXIMAB) INJECTION [Suspect]
     Indication: ACUTE MYOCARDIAL INFARCTION
     Dosage: SEE IMAGE
     Dates: start: 20030104
  3. RETAVASE (RETEPLASE) LYOPHILIZED POWDER [Suspect]
     Indication: ACUTE MYOCARDIAL INFARCTION
     Dosage: 5 IU, 2 IN 1 TOTAL
     Dates: start: 20030104
  4. ASPIRIN [Concomitant]
  5. HEPARIN [Concomitant]
  6. PLAVIX [Concomitant]

REACTIONS (3)
  - DISEASE RECURRENCE [None]
  - DRUG INTERACTION [None]
  - MYOCARDIAL INFARCTION [None]
